FAERS Safety Report 22590078 (Version 2)
Quarter: 2023Q4

REPORT INFORMATION
  Report Type: Spontaneous
  Country: CN (occurrence: CN)
  Receive Date: 20230612
  Receipt Date: 20231129
  Transmission Date: 20240110
  Serious: Yes (Hospitalization, Other)
  Sender: FDA-Public Use
  Company Number: CN-TAKEDA-2023TUS056301

PATIENT
  Age: 81 Year
  Sex: Female
  Weight: 52 kg

DRUGS (24)
  1. ANAGRELIDE [Suspect]
     Active Substance: ANAGRELIDE
     Indication: Product used for unknown indication
     Dosage: 0.5 MILLIGRAM, BID
     Route: 048
     Dates: start: 20230215, end: 20230221
  2. ANAGRELIDE [Suspect]
     Active Substance: ANAGRELIDE
     Dosage: 0.5 MILLIGRAM, TID
     Route: 048
     Dates: start: 20230222, end: 20230223
  3. ANAGRELIDE [Suspect]
     Active Substance: ANAGRELIDE
     Dosage: 1 MILLIGRAM, TID
     Route: 048
     Dates: start: 20230224, end: 20230224
  4. ANAGRELIDE [Suspect]
     Active Substance: ANAGRELIDE
     Dosage: 2.5 MILLIGRAM, QD
     Route: 048
     Dates: start: 20230225, end: 20230225
  5. ANAGRELIDE [Suspect]
     Active Substance: ANAGRELIDE
     Dosage: 1 MILLIGRAM, TID
     Route: 048
     Dates: start: 20230226, end: 20230302
  6. ANAGRELIDE [Suspect]
     Active Substance: ANAGRELIDE
     Dosage: 3.5 MILLIGRAM, QD
     Route: 048
     Dates: start: 20230303, end: 20230303
  7. ANAGRELIDE [Suspect]
     Active Substance: ANAGRELIDE
     Dosage: 4 MILLIGRAM, QD
     Route: 048
     Dates: start: 20230304, end: 20230321
  8. ANAGRELIDE [Suspect]
     Active Substance: ANAGRELIDE
     Dosage: 1 MILLIGRAM, TID
     Route: 048
     Dates: start: 20230322, end: 20230327
  9. ANAGRELIDE [Suspect]
     Active Substance: ANAGRELIDE
     Dosage: 1 MILLIGRAM, BID
     Route: 048
     Dates: start: 20230328, end: 20230411
  10. ANAGRELIDE [Suspect]
     Active Substance: ANAGRELIDE
     Dosage: 2.5 MILLIGRAM, QD
     Route: 048
     Dates: start: 20230412, end: 20230424
  11. ANAGRELIDE [Suspect]
     Active Substance: ANAGRELIDE
     Dosage: 2.5 MILLIGRAM, QD
     Route: 048
     Dates: start: 20230427, end: 20230508
  12. ANAGRELIDE [Suspect]
     Active Substance: ANAGRELIDE
     Dosage: 3 MILLIGRAM, QD
     Route: 048
     Dates: start: 20230509, end: 20230514
  13. INSULIN GLARGINE [Concomitant]
     Active Substance: INSULIN GLARGINE
     Dosage: UNK
     Route: 065
     Dates: start: 202206
  14. METFORMIN HYDROCHLORIDE\SITAGLIPTIN PHOSPHATE [Concomitant]
     Active Substance: METFORMIN HYDROCHLORIDE\SITAGLIPTIN PHOSPHATE
     Dosage: UNK
     Route: 065
     Dates: start: 202201
  15. ACARBOSE [Concomitant]
     Active Substance: ACARBOSE
     Dosage: UNK
     Route: 065
     Dates: start: 202212
  16. IRBESARTAN AND HYDROCHLOROTHIAZIDE [Concomitant]
     Active Substance: HYDROCHLOROTHIAZIDE\IRBESARTAN
     Dosage: UNK
     Route: 065
     Dates: start: 2021
  17. ATORVASTATIN CALCIUM [Concomitant]
     Active Substance: ATORVASTATIN CALCIUM
     Dosage: UNK
     Route: 065
     Dates: start: 202210
  18. RIVAROXABAN [Concomitant]
     Active Substance: RIVAROXABAN
     Dosage: UNK
     Route: 065
     Dates: start: 202210
  19. MUSK [Concomitant]
     Dosage: UNK
     Route: 065
     Dates: start: 20230313
  20. PANCREATINUM [Concomitant]
     Dosage: UNK
     Route: 065
     Dates: start: 20230411
  21. DIOSMIN [Concomitant]
     Active Substance: DIOSMIN
     Dosage: UNK
     Route: 065
     Dates: start: 20230425
  22. MAGNESIUM SULFAS [Concomitant]
     Dosage: UNK
     Route: 065
     Dates: start: 20230425
  23. MUCOPOLYSACCHARIDE POLYSULFURIC ACID ESTER [Concomitant]
     Dosage: UNK
     Route: 065
     Dates: start: 20230425
  24. SULODEXIDE [Concomitant]
     Active Substance: SULODEXIDE
     Dosage: UNK
     Route: 065
     Dates: start: 20230425

REACTIONS (1)
  - Intestinal obstruction [Recovered/Resolved]

NARRATIVE: CASE EVENT DATE: 20230515
